FAERS Safety Report 9239037 (Version 2)
Quarter: 2013Q2

REPORT INFORMATION
  Report Type: Spontaneous
  Country: US (occurrence: US)
  Receive Date: 20130418
  Receipt Date: 20130527
  Transmission Date: 20140414
  Serious: No
  Sender: FDA-Public Use
  Company Number: US-009507513-1304USA006748

PATIENT
  Age: 27 Year
  Sex: Female
  Weight: 74.83 kg

DRUGS (3)
  1. CLARITIN [Suspect]
     Indication: SEASONAL ALLERGY
     Dosage: 10 MG, QD
     Route: 048
     Dates: start: 20130308, end: 20130322
  2. CLARITIN [Suspect]
     Dosage: 10 MG, QD
     Route: 048
     Dates: start: 20130413, end: 20130418
  3. ASCORBIC ACID [Concomitant]
     Indication: PRODUCT USED FOR UNKNOWN INDICATION
     Dosage: UNK, UNKNOWN

REACTIONS (6)
  - Dyspnoea [Recovered/Resolved]
  - Heart rate increased [Recovered/Resolved]
  - Dehydration [Recovered/Resolved]
  - Chills [Recovered/Resolved]
  - Anxiety [Recovered/Resolved]
  - Condition aggravated [Unknown]
